FAERS Safety Report 8315478-0 (Version None)
Quarter: 2012Q2

REPORT INFORMATION
  Report Type: 
  Country: None (occurrence: None)
  Receive Date: 20120426
  Receipt Date: 20120417
  Transmission Date: 20120825
  Serious: Yes (Hospitalization)
  Sender: FDA-Public Use
  Company Number: US-VERTEX PHARMACEUTICALS INC.-AE-2012-004893

PATIENT
  Sex: Female
  Weight: 77.18 kg

DRUGS (3)
  1. PEGASYS [Concomitant]
     Indication: HEPATITIS C
     Route: 058
     Dates: start: 20120313
  2. RIBAVIRIN [Concomitant]
     Indication: HEPATITIS C
     Dates: start: 20120313
  3. INCIVEK [Suspect]
     Indication: HEPATITIS C
     Route: 048
     Dates: start: 20120313

REACTIONS (7)
  - INJECTION SITE INFECTION [None]
  - VOMITING [None]
  - ABSCESS [None]
  - NAUSEA [None]
  - INJECTION SITE PAIN [None]
  - GASTRITIS [None]
  - DIARRHOEA [None]
